FAERS Safety Report 6822598-6 (Version None)
Quarter: 2010Q3

REPORT INFORMATION
  Report Type: 
  Country: None (occurrence: None)
  Receive Date: 20100708
  Receipt Date: 20100625
  Transmission Date: 20110219
  Serious: Yes (Other)
  Sender: FDA-Public Use
  Company Number: GB-ELI_LILLY_AND_COMPANY-GB201002000663

PATIENT

DRUGS (2)
  1. ZYPREXA [Suspect]
     Indication: GENERALISED ANXIETY DISORDER
     Dosage: 5 MG, 2/D
     Route: 064
     Dates: start: 20090227, end: 20090909
  2. ESCITALOPRAM [Concomitant]
     Indication: GENERALISED ANXIETY DISORDER
     Dosage: 20 MG, UNK
     Route: 064
     Dates: start: 20090407, end: 20090909

REACTIONS (5)
  - CARDIAC MURMUR [None]
  - DRUG EXPOSURE DURING PREGNANCY [None]
  - INGUINAL HERNIA [None]
  - PREMATURE BABY [None]
  - UMBILICAL HERNIA [None]
